FAERS Safety Report 11118541 (Version 1)
Quarter: 2015Q2

REPORT INFORMATION
  Report Type: Spontaneous
  Country: BR (occurrence: None)
  Receive Date: 20150514
  Receipt Date: 20150514
  Transmission Date: 20150821
  Serious: Yes (Hospitalization, Other)
  Sender: FDA-Public Use
  Company Number: BR-2013VAL000369

PATIENT
  Age: 55 Year
  Sex: Female

DRUGS (5)
  1. METICORTEN [Concomitant]
     Active Substance: PREDNISONE
  2. SANDOSTATIN [Suspect]
     Active Substance: OCTREOTIDE ACETATE
     Indication: ACROMEGALY
     Dates: end: 201104
  3. LEVOTHYROXINE [Concomitant]
     Active Substance: LEVOTHYROXINE
  4. PREDNISONE. [Concomitant]
     Active Substance: PREDNISONE
  5. PARLODEL [Suspect]
     Active Substance: BROMOCRIPTINE MESYLATE
     Indication: PRODUCT USED FOR UNKNOWN INDICATION

REACTIONS (15)
  - Abasia [None]
  - Muscle twitching [None]
  - Thyroid neoplasm [None]
  - Fall [None]
  - Thyroid disorder [None]
  - Body height decreased [None]
  - Abdominal pain [None]
  - Choking [None]
  - Bone disorder [None]
  - Eating disorder [None]
  - Headache [None]
  - Hypothyroidism [None]
  - Hormone level abnormal [None]
  - Femur fracture [None]
  - Therapy cessation [None]

NARRATIVE: CASE EVENT DATE: 2002
